FAERS Safety Report 5017214-2 (Version None)
Quarter: 2006Q2

REPORT INFORMATION
  Report Type: 
  Country: None (occurrence: None)
  Receive Date: 20060602
  Receipt Date: 20060509
  Transmission Date: 20061013
  Serious: Yes (Hospitalization, Disabling, Other)
  Sender: FDA-Public Use
  Company Number: GB-ABBOTT-06P-167-0333108-00

PATIENT
  Sex: Female
  Weight: 68.372 kg

DRUGS (9)
  1. HUMIRA [Suspect]
     Indication: RHEUMATOID ARTHRITIS
     Route: 058
     Dates: start: 20051201
  2. ARCOXIA [Concomitant]
     Indication: RHEUMATOID ARTHRITIS
  3. BUMETANIDE [Concomitant]
     Indication: HYPERTENSION
     Route: 048
  4. ETORICOXIB [Concomitant]
     Indication: INFLAMMATION
     Route: 048
     Dates: end: 20060501
  5. PREDNISOLONE [Concomitant]
     Indication: RHEUMATOID ARTHRITIS
     Route: 048
  6. LANSOPRAZOLE [Concomitant]
     Indication: PROPHYLAXIS AGAINST GASTROINTESTINAL ULCER
     Route: 048
  7. METHOTREXATE [Concomitant]
     Indication: RHEUMATOID ARTHRITIS
  8. RAMIPRIL [Concomitant]
     Indication: HYPERTENSION
     Route: 048
  9. ATORVASTATIN CALCIUM [Concomitant]
     Indication: BLOOD CHOLESTEROL INCREASED
     Route: 048

REACTIONS (2)
  - MYOCARDIAL INFARCTION [None]
  - VENTRICULAR DYSFUNCTION [None]
